FAERS Safety Report 8297495-2 (Version None)
Quarter: 2012Q1

REPORT INFORMATION
  Report Type: 
  Country: None (occurrence: None)
  Receive Date: 20120322
  Receipt Date: 20120118
  Transmission Date: 20120608
  Serious: Yes (Hospitalization)
  Sender: FDA-Public Use
  Company Number: UTC-014783

PATIENT
  Age: 73 Year
  Sex: Female
  Weight: 81.36 kg

DRUGS (3)
  1. REVATIO [Concomitant]
  2. TYVASO [Suspect]
     Indication: PULMONARY HYPERTENSION
     Dosage: 144 MCG (36 MCG, 4 IN 1 D), INHALATION
     Route: 055
     Dates: start: 20091207
  3. DIURETICS (DIURETICS) [Concomitant]

REACTIONS (2)
  - PAIN [None]
  - CARDIAC FAILURE CONGESTIVE [None]
